FAERS Safety Report 7641155-5 (Version None)
Quarter: 2011Q3

REPORT INFORMATION
  Report Type: 
  Country: None (occurrence: None)
  Receive Date: 20110728
  Receipt Date: 20110714
  Transmission Date: 20111222
  Serious: Yes (Other)
  Sender: FDA-Public Use
  Company Number: PHHY2011AR63787

PATIENT
  Sex: Female

DRUGS (1)
  1. DIOVAN [Suspect]
     Indication: HYPERTENSION
     Dosage: 0.5 DF X 160 MG, DAILY
     Route: 048

REACTIONS (3)
  - BLOOD PRESSURE SYSTOLIC INCREASED [None]
  - URTICARIA [None]
  - HYPERSENSITIVITY [None]
